FAERS Safety Report 8349667-6 (Version None)
Quarter: 2012Q2

REPORT INFORMATION
  Report Type: 
  Country: None (occurrence: None)
  Receive Date: 20120510
  Receipt Date: 20120503
  Transmission Date: 20120825
  Serious: Yes (Hospitalization)
  Sender: FDA-Public Use
  Company Number: US-SANOFI-AVENTIS-2012SA032059

PATIENT
  Age: 56 Year
  Sex: Female

DRUGS (3)
  1. TRASTUZUMAB [Suspect]
     Route: 042
     Dates: start: 20110215
  2. DOCETAXEL [Suspect]
     Route: 065
  3. TRASTUZUMAB [Suspect]
     Route: 065

REACTIONS (3)
  - ATAXIA [None]
  - CONFUSIONAL STATE [None]
  - PAIN [None]
